FAERS Safety Report 16669780 (Version 2)
Quarter: 2019Q3

REPORT INFORMATION
  Report Type: Report from Study
  Country: US (occurrence: US)
  Receive Date: 20190805
  Receipt Date: 20190822
  Transmission Date: 20191004
  Serious: Yes (Hospitalization, Disabling, Other)
  Sender: FDA-Public Use
  Company Number: US-SA-2019SA147265

PATIENT
  Age: 60 Year
  Sex: Female

DRUGS (2)
  1. DRONEDARONE [Suspect]
     Active Substance: DRONEDARONE
     Indication: CARDIAC DISORDER
     Dosage: 400 MG, BID
     Dates: start: 20100615
  2. DRONEDARONE [Suspect]
     Active Substance: DRONEDARONE
     Indication: HEART RATE IRREGULAR

REACTIONS (3)
  - Ischaemic stroke [Recovered/Resolved]
  - Drug dependence [Unknown]
  - Monoplegia [Not Recovered/Not Resolved]

NARRATIVE: CASE EVENT DATE: 20180123
